FAERS Safety Report 25353011 (Version 3)
Quarter: 2025Q3

REPORT INFORMATION
  Report Type: Report from Study
  Country: US (occurrence: US)
  Receive Date: 20250523
  Receipt Date: 20250710
  Transmission Date: 20251020
  Serious: No
  Sender: MALLINCKRODT
  Company Number: US-MALLINCKRODT-MNK202502942

PATIENT
  Age: 68 Year
  Sex: Male

DRUGS (2)
  1. CORTICOTROPIN [Suspect]
     Active Substance: CORTICOTROPIN
     Indication: Pulmonary sarcoidosis
     Route: 058
  2. PREDNISONE [Concomitant]
     Active Substance: PREDNISONE

REACTIONS (7)
  - Brain fog [Unknown]
  - Abdominal discomfort [Unknown]
  - Eye disorder [Unknown]
  - Joint swelling [Unknown]
  - Visual impairment [Unknown]
  - Malaise [Unknown]
  - Drug ineffective [Unknown]
